FAERS Safety Report 18246322 (Version 1)
Quarter: 2020Q3

REPORT INFORMATION
  Report Type: Other
  Country: KR (occurrence: KR)
  Receive Date: 20200909
  Receipt Date: 20200909
  Transmission Date: 20201103
  Serious: Yes (Other)
  Sender: FDA-Public Use
  Company Number: KR-ROCHE-2673726

PATIENT

DRUGS (5)
  1. TOCILIZUMAB. [Suspect]
     Active Substance: TOCILIZUMAB
     Indication: ENCEPHALITIS AUTOIMMUNE
     Dosage: AS REDUCED (4?6 MG/KG MONTHLY) OR SPLIT DOSES (2?4 MG/KG REPEATED)
     Route: 065
  2. METHYLPREDNISOLONE. [Suspect]
     Active Substance: METHYLPREDNISOLONE
     Indication: ENCEPHALITIS AUTOIMMUNE
     Dosage: FOR 3?5 DAYS
     Route: 042
  3. PREDNISOLONE. [Suspect]
     Active Substance: PREDNISOLONE
     Indication: ENCEPHALITIS AUTOIMMUNE
     Route: 048
  4. RITUXIMAB. [Suspect]
     Active Substance: RITUXIMAB
     Indication: ENCEPHALITIS AUTOIMMUNE
     Dosage: FOR 4 CYCLES WITH OR WITHOUT ADDITIONAL MONTHLY MAINTENANCE
     Route: 065
  5. IMMUNOGLOBULIN HUMAN NORMAL [Suspect]
     Active Substance: HUMAN IMMUNOGLOBULIN G
     Indication: ENCEPHALITIS AUTOIMMUNE
     Dosage: 1?2 G/KG DURING 2?5 DAYS PER CYCLE
     Route: 042

REACTIONS (6)
  - Eosinophilia [Unknown]
  - Lymphopenia [Unknown]
  - Pneumonia [Unknown]
  - Acute kidney injury [Unknown]
  - Neutropenia [Unknown]
  - Urinary tract infection [Unknown]
